FAERS Safety Report 10789955 (Version 1)
Quarter: 2015Q1

REPORT INFORMATION
  Report Type: Spontaneous
  Country: US (occurrence: US)
  Receive Date: 20150212
  Receipt Date: 20150212
  Transmission Date: 20150721
  Serious: Yes (Disabling, Other)
  Sender: FDA-Public Use
  Company Number: PHEH2015US002642

PATIENT
  Age: 36 Year
  Sex: Male
  Weight: 70.3 kg

DRUGS (1)
  1. LAMISIL [Suspect]
     Active Substance: TERBINAFINE HYDROCHLORIDE
     Indication: TINEA CRURIS
     Dosage: 250 MG, QD
     Route: 048
     Dates: start: 20131015, end: 20140115

REACTIONS (2)
  - Drug resistance [Not Recovered/Not Resolved]
  - Body tinea [Not Recovered/Not Resolved]

NARRATIVE: CASE EVENT DATE: 20140820
